FAERS Safety Report 20662892 (Version 1)
Quarter: 2022Q2

REPORT INFORMATION
  Report Type: Spontaneous
  Country: US (occurrence: US)
  Receive Date: 20220401
  Receipt Date: 20220401
  Transmission Date: 20220720
  Serious: Yes (Hospitalization, Other)
  Sender: FDA-Public Use
  Company Number: US-PERRIGO-22US004540

PATIENT
  Age: 79 Year
  Sex: Male
  Weight: 95.238 kg

DRUGS (2)
  1. DOCUSATE SODIUM [Suspect]
     Active Substance: DOCUSATE SODIUM
     Indication: Faeces hard
     Dosage: 100 MG, 2 TO 3 TIMES DAILY
     Route: 048
     Dates: start: 20220207, end: 20220218
  2. DOCUSATE SODIUM [Suspect]
     Active Substance: DOCUSATE SODIUM
     Dosage: 100 MG, 2 TO 3 TIMES DAILY
     Route: 048
     Dates: start: 20220221, end: 20220224

REACTIONS (3)
  - Intestinal obstruction [Recovered/Resolved]
  - Drug ineffective [Unknown]
  - Incorrect product administration duration [Recovered/Resolved]

NARRATIVE: CASE EVENT DATE: 20220201
